FAERS Safety Report 9119228 (Version 2)
Quarter: 2013Q2

REPORT INFORMATION
  Report Type: Report from Study
  Country: CA (occurrence: CA)
  Receive Date: 20130226
  Receipt Date: 20130423
  Transmission Date: 20140414
  Serious: Yes (Hospitalization)
  Sender: FDA-Public Use
  Company Number: PHHY2013CA017917

PATIENT
  Sex: Female

DRUGS (7)
  1. ACLASTA [Suspect]
     Indication: OSTEOPOROSIS
     Dosage: UNK
     Route: 042
     Dates: start: 20090415
  2. ACLASTA [Suspect]
     Dosage: UNK
     Route: 042
     Dates: start: 20100415
  3. ACLASTA [Suspect]
     Dosage: UNK
     Route: 042
     Dates: start: 20110411
  4. ACLASTA [Suspect]
     Dosage: UNK
     Route: 042
     Dates: start: 20120413
  5. PREDNISONE [Concomitant]
     Dosage: 1.5 DF, UNK
  6. EFFEXOR XR [Concomitant]
     Dosage: 37.5 MG,
  7. CELEXA [Concomitant]
     Dosage: 100 MG,

REACTIONS (5)
  - Cardiac failure [Recovered/Resolved]
  - Pulmonary oedema [Recovered/Resolved]
  - Abdominal pain [Recovered/Resolved]
  - Pain [Unknown]
  - Drug ineffective [Unknown]
